FAERS Safety Report 13006259 (Version 1)
Quarter: 2016Q4

REPORT INFORMATION
  Report Type: Spontaneous
  Country: NL (occurrence: NL)
  Receive Date: 20161207
  Receipt Date: 20161207
  Transmission Date: 20170207
  Serious: Yes (Hospitalization)
  Sender: FDA-Public Use
  Company Number: NL-GALDERMA-NL16008178

PATIENT
  Age: 47 Year
  Sex: Male
  Weight: 86 kg

DRUGS (3)
  1. SIMVASTATINE [Concomitant]
     Active Substance: SIMVASTATIN
     Indication: PRODUCT USED FOR UNKNOWN INDICATION
     Dosage: TABLET / 40MG
     Route: 048
     Dates: start: 2013
  2. ACITRETINE [Concomitant]
     Active Substance: ACITRETIN
     Indication: PRODUCT USED FOR UNKNOWN INDICATION
     Dosage: TIMES PER 50MG / CAPSULE / 25MG
     Route: 048
     Dates: start: 2014
  3. SILKIS [Suspect]
     Active Substance: CALCITRIOL
     Indication: ICHTHYOSIS
     Dates: start: 2015, end: 20161122

REACTIONS (3)
  - Renal impairment [Unknown]
  - Hypercalcaemia [Recovering/Resolving]
  - Intentional product use issue [Recovering/Resolving]

NARRATIVE: CASE EVENT DATE: 2015
